FAERS Safety Report 7407607-8 (Version None)
Quarter: 2011Q2

REPORT INFORMATION
  Report Type: 
  Country: None (occurrence: None)
  Receive Date: 20110405
  Receipt Date: 20110319
  Transmission Date: 20111010
  Serious: Yes (Hospitalization, Other)
  Sender: FDA-Public Use
  Company Number: 2011AP000498

PATIENT
  Age: 41 Year
  Sex: Male

DRUGS (6)
  1. LEVETIRACETAM [Suspect]
     Indication: CONVULSION
     Dosage: 1500 MG; BID;, 63 GM;
  2. LAMOTRIGINE [Concomitant]
  3. CITALOPRAM [Concomitant]
  4. CLORAZEPATE DIPOTASSIUM [Concomitant]
  5. CARBAMAZEPINE [Concomitant]
  6. AMITRIPTYLINE [Concomitant]

REACTIONS (6)
  - VISION BLURRED [None]
  - LEUKOPENIA [None]
  - THROMBOCYTOPENIA [None]
  - OVERDOSE [None]
  - DEPRESSION [None]
  - ATAXIA [None]
